FAERS Safety Report 6925109-X (Version None)
Quarter: 2010Q3

REPORT INFORMATION
  Report Type: 
  Country: None (occurrence: None)
  Receive Date: 20100816
  Receipt Date: 20100715
  Transmission Date: 20110219
  Serious: No
  Sender: FDA-Public Use
  Company Number: US-BAYER-201018433BCC

PATIENT
  Age: 83 Year
  Sex: Male
  Weight: 77 kg

DRUGS (8)
  1. ALEVE [Suspect]
     Indication: ARTHRALGIA
     Dosage: TOTAL DAILY DOSE: 220 MG  UNIT DOSE: 220 MG
     Route: 048
     Dates: start: 20100301
  2. AVALIDE [Concomitant]
     Route: 065
  3. ASPIRIN [Concomitant]
     Route: 065
  4. LOVAZA [Concomitant]
     Route: 065
  5. CYTHROID [Concomitant]
     Route: 065
  6. ONE A DAY [Concomitant]
     Route: 065
  7. CENTRUM [Concomitant]
     Route: 065
  8. FLOMAX [Concomitant]
     Route: 065

REACTIONS (2)
  - DIARRHOEA [None]
  - DYSPEPSIA [None]
